FAERS Safety Report 25682475 (Version 2)
Quarter: 2025Q3

REPORT INFORMATION
  Report Type: Spontaneous
  Country: US (occurrence: US)
  Receive Date: 20250814
  Receipt Date: 20250919
  Transmission Date: 20251020
  Serious: No
  Sender: JOHNSON AND JOHNSON
  Company Number: US-JNJFOC-20250814047

PATIENT

DRUGS (1)
  1. SIMPONI [Suspect]
     Active Substance: GOLIMUMAB
     Indication: Product used for unknown indication
     Route: 065

REACTIONS (5)
  - Device defective [Unknown]
  - Device issue [Unknown]
  - Device delivery system issue [Unknown]
  - Product leakage [Unknown]
  - Product dose omission issue [Unknown]
